FAERS Safety Report 7133252-8 (Version None)
Quarter: 2010Q4

REPORT INFORMATION
  Report Type: 
  Country: None (occurrence: None)
  Receive Date: 20101202
  Receipt Date: 20101124
  Transmission Date: 20110411
  Serious: Yes (Other)
  Sender: FDA-Public Use
  Company Number: BR-ABBOTT-10P-020-0688574-00

PATIENT
  Sex: Male
  Weight: 104 kg

DRUGS (8)
  1. HUMIRA [Suspect]
     Indication: ANKYLOSING SPONDYLITIS
     Route: 058
     Dates: start: 20090101
  2. PREDNISONE [Suspect]
     Indication: RHINITIS ALLERGIC
     Dosage: 1 OR 2 PER DAY
     Route: 048
     Dates: start: 20101001
  3. SULFASALAZINE [Concomitant]
     Indication: ANKYLOSING SPONDYLITIS
     Route: 048
     Dates: start: 20080901
  4. OMEPRAZOLE [Concomitant]
     Indication: PROPHYLAXIS
     Route: 048
     Dates: start: 20080201
  5. OMEPRAZOLE [Concomitant]
     Indication: GASTRIC DISORDER
     Dates: start: 20100901
  6. DICLOFENAC SODIUM [Concomitant]
     Indication: ANKYLOSING SPONDYLITIS
     Route: 048
  7. DICLOFENAC SODIUM [Concomitant]
     Indication: PAIN
  8. MAGISTRAL FORMULA [Concomitant]
     Indication: VISUAL IMPAIRMENT
     Dosage: KETOROLAC/TROMETAMOL 0.4% 4 DROPS/DAY
     Dates: start: 20080101, end: 20100101

REACTIONS (21)
  - ABDOMINAL PAIN UPPER [None]
  - ANKYLOSING SPONDYLITIS [None]
  - ANXIETY [None]
  - CORRECTIVE LENS USER [None]
  - DYSPNOEA [None]
  - EYE IRRITATION [None]
  - GINGIVAL BLEEDING [None]
  - HAEMORRHAGE [None]
  - HEADACHE [None]
  - LIGAMENT RUPTURE [None]
  - MENISCUS LESION [None]
  - MITRAL VALVE DISEASE [None]
  - MUSCLE SPASMS [None]
  - PAIN [None]
  - RHINITIS ALLERGIC [None]
  - SWELLING [None]
  - TOOTH DISCOLOURATION [None]
  - TOOTH LOSS [None]
  - TREMOR [None]
  - VISION BLURRED [None]
  - WEIGHT DECREASED [None]
